FAERS Safety Report 10310625 (Version 3)
Quarter: 2014Q3

REPORT INFORMATION
  Report Type: Spontaneous
  Country: MT (occurrence: MT)
  Receive Date: 20140717
  Receipt Date: 20140723
  Transmission Date: 20150326
  Serious: No
  Sender: FDA-Public Use
  Company Number: MT-PFIZER INC-2014167859

PATIENT
  Age: 57 Year
  Sex: Female

DRUGS (1)
  1. XALKORI [Suspect]
     Active Substance: CRIZOTINIB
     Indication: NEOPLASM MALIGNANT
     Dosage: UNK
     Dates: start: 201312

REACTIONS (2)
  - Disease progression [Unknown]
  - Neoplasm malignant [Unknown]
